FAERS Safety Report 22789561 (Version 7)
Quarter: 2023Q4

REPORT INFORMATION
  Report Type: Report from Study
  Country: US (occurrence: US)
  Receive Date: 20230804
  Receipt Date: 20231215
  Transmission Date: 20240109
  Serious: Yes (Other)
  Sender: FDA-Public Use
  Company Number: US-TAKEDA-2023TUS049355

PATIENT
  Age: 70 Year
  Sex: Female

DRUGS (15)
  1. MOBOCERTINIB [Suspect]
     Active Substance: MOBOCERTINIB
     Indication: Lung neoplasm malignant
     Dosage: 160 MILLIGRAM, QD
     Route: 048
     Dates: start: 20230513
  2. MOBOCERTINIB [Suspect]
     Active Substance: MOBOCERTINIB
     Dosage: 40 MILLIGRAM, TID
     Route: 048
  3. MOBOCERTINIB [Suspect]
     Active Substance: MOBOCERTINIB
     Dosage: 160 MILLIGRAM, QD
     Route: 048
  4. MOBOCERTINIB [Suspect]
     Active Substance: MOBOCERTINIB
     Dosage: 120 MILLIGRAM, QD
     Route: 048
  5. MOBOCERTINIB [Suspect]
     Active Substance: MOBOCERTINIB
     Dosage: 160 MILLIGRAM, QD
     Route: 048
     Dates: end: 20231117
  6. MOBOCERTINIB [Suspect]
     Active Substance: MOBOCERTINIB
     Dosage: 160 MILLIGRAM, QD
     Route: 065
  7. ASPIRIN [Concomitant]
     Active Substance: ASPIRIN
     Dosage: UNK
     Route: 065
  8. OMEPRAZOLE [Concomitant]
     Active Substance: OMEPRAZOLE
     Dosage: UNK
     Route: 065
  9. CALCIUM [Concomitant]
     Active Substance: CALCIUM
     Dosage: UNK
     Route: 065
  10. VITAMIN D3 [Concomitant]
     Active Substance: CHOLECALCIFEROL
     Dosage: UNK
     Route: 065
  11. MAGNESIUM [Concomitant]
     Active Substance: MAGNESIUM
     Dosage: UNK
     Route: 065
  12. POTASSIUM [Concomitant]
     Active Substance: POTASSIUM
     Dosage: UNK
     Route: 065
  13. LIPITOR [Concomitant]
     Active Substance: ATORVASTATIN CALCIUM
     Dosage: UNK
     Route: 065
  14. METOPROLOL [Concomitant]
     Active Substance: METOPROLOL
     Dosage: UNK
     Route: 065
  15. LOPERAMIDE [Concomitant]
     Active Substance: LOPERAMIDE
     Dosage: UNK
     Route: 065

REACTIONS (20)
  - Diarrhoea [Not Recovered/Not Resolved]
  - Anaemia [Not Recovered/Not Resolved]
  - Electrocardiogram QT shortened [Unknown]
  - Cardiac disorder [Recovered/Resolved]
  - Weight decreased [Not Recovered/Not Resolved]
  - Dry skin [Not Recovered/Not Resolved]
  - Rash [Unknown]
  - Flatulence [Not Recovered/Not Resolved]
  - Fatigue [Not Recovered/Not Resolved]
  - Nausea [Not Recovered/Not Resolved]
  - Vomiting [Recovered/Resolved]
  - Bone pain [Not Recovered/Not Resolved]
  - Arthralgia [Not Recovered/Not Resolved]
  - Pain in extremity [Not Recovered/Not Resolved]
  - Stomatitis [Not Recovered/Not Resolved]
  - Epistaxis [Not Recovered/Not Resolved]
  - Electrocardiogram abnormal [Unknown]
  - Heart rate irregular [Not Recovered/Not Resolved]
  - Loss of personal independence in daily activities [Unknown]
  - Ejection fraction decreased [Unknown]

NARRATIVE: CASE EVENT DATE: 20230620
